FAERS Safety Report 25066344 (Version 1)
Quarter: 2025Q1

REPORT INFORMATION
  Report Type: Spontaneous
  Country: SK (occurrence: SK)
  Receive Date: 20250312
  Receipt Date: 20250312
  Transmission Date: 20250408
  Serious: Yes (Other)
  Sender: FERRING
  Company Number: None

PATIENT

DRUGS (1)
  1. FIRMAGON [Suspect]
     Active Substance: DEGARELIX ACETATE
     Indication: Product used for unknown indication
     Route: 065

REACTIONS (1)
  - Hyperpyrexia [Unknown]
